FAERS Safety Report 10043709 (Version 1)
Quarter: 2014Q1

REPORT INFORMATION
  Report Type: Spontaneous
  Country: US (occurrence: US)
  Receive Date: 20140328
  Receipt Date: 20140328
  Transmission Date: 20141002
  Serious: Yes (Other)
  Sender: FDA-Public Use
  Company Number: US-BAYER-2014-042594

PATIENT
  Age: 54 Year
  Sex: Female
  Weight: 75 kg

DRUGS (1)
  1. ALEVE CAPLET [Suspect]
     Route: 048

REACTIONS (4)
  - Drug hypersensitivity [Recovering/Resolving]
  - Urticaria [Recovering/Resolving]
  - Pharyngeal oedema [None]
  - Urticaria [None]
